APPROVED DRUG PRODUCT: MITOMYCIN
Active Ingredient: MITOMYCIN
Strength: 20MG/VIAL
Dosage Form/Route: INJECTABLE;INJECTION
Application: A211269 | Product #002 | TE Code: AP
Applicant: FRESENIUS KABI USA LLC
Approved: Apr 5, 2024 | RLD: No | RS: No | Type: RX